FAERS Safety Report 20810721 (Version 1)
Quarter: 2022Q2

REPORT INFORMATION
  Report Type: Spontaneous
  Country: IL (occurrence: IL)
  Receive Date: 20220510
  Receipt Date: 20220510
  Transmission Date: 20220720
  Serious: Yes (Hospitalization, Other)
  Sender: FDA-Public Use
  Company Number: IL-GLAXOSMITHKLINE-IL2022GSK074800

PATIENT
  Age: 54 Year
  Sex: Male

DRUGS (16)
  1. SULFAMERAZINE SODIUM\TRIMETHOPRIM [Suspect]
     Active Substance: SULFAMERAZINE SODIUM\TRIMETHOPRIM
     Indication: Antibiotic prophylaxis
     Dosage: 960 MG TWICE WEEKLY
  2. SULFAMERAZINE SODIUM\TRIMETHOPRIM [Suspect]
     Active Substance: SULFAMERAZINE SODIUM\TRIMETHOPRIM
     Indication: Pulmonary nocardiosis
  3. ACYCLOVIR [Suspect]
     Active Substance: ACYCLOVIR
     Indication: Antibiotic prophylaxis
     Dosage: 400 MG, BID
  4. CEFTRIAXONE [Suspect]
     Active Substance: CEFTRIAXONE
     Indication: Antibiotic prophylaxis
     Dosage: UNK
  5. LEVOFLOXACIN [Suspect]
     Active Substance: LEVOFLOXACIN
     Indication: Antibiotic prophylaxis
     Dosage: UNK
  6. AMIKACIN SULFATE [Suspect]
     Active Substance: AMIKACIN SULFATE
     Indication: Pulmonary nocardiosis
     Dosage: UNK
  7. MOXIFLOXACIN [Suspect]
     Active Substance: MOXIFLOXACIN
     Indication: Pulmonary nocardiosis
     Dosage: UNK
     Route: 048
  8. VORICONAZOLE [Suspect]
     Active Substance: VORICONAZOLE
     Indication: Antibiotic prophylaxis
     Dosage: 200 MG, BID
  9. AZITHROMYCIN [Suspect]
     Active Substance: AZITHROMYCIN
     Indication: Antibiotic prophylaxis
     Dosage: UNK
  10. PIPERACILLIN AND TAZOBACTAM [Suspect]
     Active Substance: PIPERACILLIN SODIUM\TAZOBACTAM SODIUM
     Indication: Antibiotic prophylaxis
     Dosage: UNK
  11. IMIPENEM [Suspect]
     Active Substance: IMIPENEM
     Indication: Pulmonary nocardiosis
     Dosage: UNK
  12. LINEZOLID [Suspect]
     Active Substance: LINEZOLID
     Indication: Pulmonary nocardiosis
     Dosage: UNK
  13. PREDNISONE [Concomitant]
     Active Substance: PREDNISONE
     Indication: Immunosuppression
     Dosage: 30 MG, 1D
  14. PREDNISONE [Concomitant]
     Active Substance: PREDNISONE
     Indication: Graft versus host disease
     Dosage: 40 MG, 1D
  15. CYCLOSPORINE [Concomitant]
     Active Substance: CYCLOSPORINE
     Indication: Immunosuppression
     Dosage: 175 MG, BID
  16. CYCLOSPORINE [Concomitant]
     Active Substance: CYCLOSPORINE
     Indication: Graft versus host disease
     Dosage: 100 MG, BID

REACTIONS (11)
  - Immune reconstitution inflammatory syndrome [Recovered/Resolved]
  - Pyrexia [Recovered/Resolved]
  - Chest pain [Recovered/Resolved]
  - Pancytopenia [Recovered/Resolved]
  - Condition aggravated [Recovered/Resolved]
  - Fall [Recovered/Resolved]
  - Lung infiltration [Recovered/Resolved]
  - Acid fast bacilli infection [Recovered/Resolved]
  - Pleural effusion [Recovered/Resolved]
  - Oedema [Recovered/Resolved]
  - Drug ineffective [Unknown]
